FAERS Safety Report 9787727 (Version 1)
Quarter: 2013Q4

REPORT INFORMATION
  Report Type: Spontaneous
  Country: FR (occurrence: FR)
  Receive Date: 20131230
  Receipt Date: 20131230
  Transmission Date: 20140711
  Serious: Yes (Life-Threatening)
  Sender: FDA-Public Use
  Company Number: FR-JNJFOC-20131215411

PATIENT
  Age: 68 Year
  Sex: Male

DRUGS (4)
  1. XARELTO [Suspect]
     Indication: PRODUCT USED FOR UNKNOWN INDICATION
     Route: 048
     Dates: start: 20130220, end: 20131107
  2. COOLMETEC [Concomitant]
     Route: 065
  3. CORDARONE [Concomitant]
     Route: 065
  4. FENOFIBRATE [Concomitant]
     Route: 065

REACTIONS (7)
  - Shock haemorrhagic [Recovered/Resolved with Sequelae]
  - Arterial haemorrhage [Recovered/Resolved with Sequelae]
  - Peritoneal haemorrhage [Recovered/Resolved with Sequelae]
  - Renal failure acute [Recovered/Resolved with Sequelae]
  - Anaemia [Recovering/Resolving]
  - Hemiplegia [Recovering/Resolving]
  - Ischaemic hepatitis [Recovering/Resolving]
